FAERS Safety Report 20523616 (Version 3)
Quarter: 2022Q2

REPORT INFORMATION
  Report Type: Spontaneous
  Country: US (occurrence: US)
  Receive Date: 20220228
  Receipt Date: 20220526
  Transmission Date: 20220721
  Serious: Yes (Other)
  Sender: FDA-Public Use
  Company Number: US-APOTEX-2022AP003671

PATIENT
  Sex: Male

DRUGS (2)
  1. ATORVASTATIN [Suspect]
     Active Substance: ATORVASTATIN
     Indication: Myocardial infarction
     Dosage: 1 DOSAGE FORM, QD
     Route: 048
     Dates: start: 2020, end: 20210422
  2. METFORMIN [Concomitant]
     Active Substance: METFORMIN HYDROCHLORIDE
     Indication: Diabetes mellitus
     Dosage: 1 DOSAGE FORM, BID
     Route: 048

REACTIONS (18)
  - Autoimmune disorder [Recovering/Resolving]
  - Pancreatic failure [Recovering/Resolving]
  - Ophthalmoplegia [Recovering/Resolving]
  - Respiratory tract infection [Recovering/Resolving]
  - Rhabdomyolysis [Recovering/Resolving]
  - Liver injury [Recovering/Resolving]
  - Visual impairment [Recovering/Resolving]
  - Muscle atrophy [Recovering/Resolving]
  - Fall [Recovering/Resolving]
  - Laryngospasm [Recovering/Resolving]
  - Gait inability [Recovering/Resolving]
  - Dysphonia [Recovering/Resolving]
  - Loss of personal independence in daily activities [Recovering/Resolving]
  - Ill-defined disorder [Recovering/Resolving]
  - Rib fracture [Recovering/Resolving]
  - Tongue injury [Recovering/Resolving]
  - Myositis [Recovering/Resolving]
  - Blood glucose increased [Recovering/Resolving]
